FAERS Safety Report 10070465 (Version 1)
Quarter: 2014Q2

REPORT INFORMATION
  Report Type: Spontaneous
  Country: US (occurrence: US)
  Receive Date: 20140410
  Receipt Date: 20140410
  Transmission Date: 20141212
  Serious: No
  Sender: FDA-Public Use
  Company Number: US-ROXANE LABORATORIES, INC.-2014-RO-00557RO

PATIENT
  Sex: Female

DRUGS (1)
  1. FLUTICASONE [Suspect]
     Indication: INFLUENZA
     Route: 065

REACTIONS (1)
  - Drug ineffective for unapproved indication [Unknown]
